FAERS Safety Report 9826813 (Version 1)
Quarter: 2013Q4

REPORT INFORMATION
  Report Type: Spontaneous
  Country: US (occurrence: None)
  Receive Date: 20131112
  Receipt Date: 20131112
  Transmission Date: 20140711
  Serious: Yes (Other)
  Sender: FDA-Public Use
  Company Number: US-012586

PATIENT
  Sex: Female

DRUGS (2)
  1. PICO-SALAX [Suspect]
     Indication: BOWEL PREPARATION
     Dosage: 1ST DOSE AT 7PM ON 28 JULY 2013; 2ND DOSE AT 2 AM ON 29 JULY 2013
  2. PROTONIX [Concomitant]

REACTIONS (1)
  - Drug ineffective [None]
